FAERS Safety Report 12970129 (Version 8)
Quarter: 2017Q3

REPORT INFORMATION
  Report Type: Spontaneous
  Country: US (occurrence: US)
  Receive Date: 20161123
  Receipt Date: 20170711
  Transmission Date: 20171127
  Serious: Yes (Hospitalization, Other)
  Sender: FDA-Public Use
  Company Number: US-JNJFOC-20161120434

PATIENT
  Sex: Female
  Weight: 58.96 kg

DRUGS (8)
  1. ADEMPAS [Suspect]
     Active Substance: RIOCIGUAT
     Indication: PULMONARY ARTERIAL HYPERTENSION
     Route: 048
  2. ADEMPAS [Suspect]
     Active Substance: RIOCIGUAT
     Indication: PULMONARY ARTERIAL HYPERTENSION
     Route: 048
     Dates: start: 20160109
  3. ADEMPAS [Suspect]
     Active Substance: RIOCIGUAT
     Indication: PULMONARY ARTERIAL HYPERTENSION
     Route: 048
     Dates: start: 20160129
  4. ADEMPAS [Suspect]
     Active Substance: RIOCIGUAT
     Indication: PULMONARY ARTERIAL HYPERTENSION
     Route: 048
  5. ADEMPAS [Suspect]
     Active Substance: RIOCIGUAT
     Indication: PULMONARY ARTERIAL HYPERTENSION
     Route: 048
  6. NIFEDIPINE. [Concomitant]
     Active Substance: NIFEDIPINE
     Route: 065
  7. ADEMPAS [Suspect]
     Active Substance: RIOCIGUAT
     Indication: PULMONARY ARTERIAL HYPERTENSION
     Route: 048
  8. XARELTO [Suspect]
     Active Substance: RIVAROXABAN
     Indication: PRODUCT USED FOR UNKNOWN INDICATION
     Route: 048

REACTIONS (23)
  - Visual impairment [Unknown]
  - Blood urine present [Unknown]
  - Cough [Unknown]
  - Fatigue [Unknown]
  - Arthritis [Unknown]
  - Cardiac assistance device user [Unknown]
  - Decreased appetite [Unknown]
  - Thyroid disorder [Unknown]
  - Joint swelling [Unknown]
  - Lyme disease [Unknown]
  - Dyspnoea [Unknown]
  - Respiration abnormal [Unknown]
  - Hypoacusis [Unknown]
  - Abdominal pain upper [Unknown]
  - Sneezing [Unknown]
  - Asthenia [Unknown]
  - Somnolence [Unknown]
  - Chest pain [Unknown]
  - Herpes zoster [Unknown]
  - Haematochezia [Unknown]
  - Oedema [Unknown]
  - Bronchitis [Unknown]
  - Motor dysfunction [Unknown]
